FAERS Safety Report 9120960 (Version 1)
Quarter: 2013Q1

REPORT INFORMATION
  Report Type: Spontaneous
  Country: US (occurrence: US)
  Receive Date: 20130226
  Receipt Date: 20130226
  Transmission Date: 20140127
  Serious: Yes (Other)
  Sender: FDA-Public Use
  Company Number: US-JNJFOC-20130211208

PATIENT
  Age: 66 Year
  Sex: Male
  Weight: 71.67 kg

DRUGS (2)
  1. TYLENOL COLD MULTI-SYMPTOM NIGHTTIME [Suspect]
     Indication: RHINORRHOEA
     Dosage: 30 ML TWICE A DAY
     Route: 048
     Dates: start: 201301
  2. METHOTREXATE [Concomitant]
     Indication: ARTHRITIS
     Route: 065
     Dates: start: 20100131

REACTIONS (1)
  - Urinary tract infection [Recovered/Resolved]
